FAERS Safety Report 9687840 (Version 1)
Quarter: 2013Q4

REPORT INFORMATION
  Report Type: Spontaneous
  Country: GB (occurrence: None)
  Receive Date: 20131112
  Receipt Date: 20131112
  Transmission Date: 20140711
  Serious: Yes (Other)
  Sender: FDA-Public Use
  Company Number: AUR-APL-2013-09276

PATIENT
  Age: 48 Year
  Sex: Female
  Weight: 63.5 kg

DRUGS (2)
  1. MIRTAZAPINE [Suspect]
     Indication: DEPRESSION
     Route: 048
     Dates: start: 20131001, end: 20131019
  2. FISH OIL [Concomitant]

REACTIONS (6)
  - Dizziness [None]
  - Loss of consciousness [None]
  - Headache [None]
  - Economic problem [None]
  - Fear [None]
  - Product substitution issue [None]
